FAERS Safety Report 7177521-4 (Version None)
Quarter: 2010Q4

REPORT INFORMATION
  Report Type: 
  Country: None (occurrence: None)
  Receive Date: 20101220
  Receipt Date: 20101201
  Transmission Date: 20110411
  Serious: Yes (Other)
  Sender: FDA-Public Use
  Company Number: PHHY2010JP83124

PATIENT
  Age: 73 Year
  Sex: Female

DRUGS (1)
  1. OCTREOTIDE ACETATE [Suspect]
     Route: 058

REACTIONS (4)
  - ABDOMINAL CAVITY DRAINAGE [None]
  - ASCITES [None]
  - CONCOMITANT DISEASE AGGRAVATED [None]
  - VOMITING [None]
